FAERS Safety Report 6895150-4 (Version None)
Quarter: 2010Q3

REPORT INFORMATION
  Report Type: 
  Country: None (occurrence: None)
  Receive Date: 20100802
  Receipt Date: 20100726
  Transmission Date: 20110219
  Serious: Yes (Hospitalization, Other)
  Sender: FDA-Public Use
  Company Number: US-JNJFOC-20100708350

PATIENT
  Sex: Male
  Weight: 86.64 kg

DRUGS (4)
  1. LEVAQUIN [Suspect]
     Indication: PROSTATITIS
     Route: 048
  2. PREDNISONE [Suspect]
     Indication: MYASTHENIA GRAVIS
     Route: 065
  3. LISINOPRIL [Concomitant]
     Route: 065
  4. CARDURA [Concomitant]
     Route: 065

REACTIONS (12)
  - ABDOMINAL DISTENSION [None]
  - BURNING SENSATION [None]
  - CLOSTRIDIUM DIFFICILE COLITIS [None]
  - CONSTIPATION [None]
  - DEPRESSED MOOD [None]
  - DIZZINESS [None]
  - EATING DISORDER [None]
  - FEELING OF BODY TEMPERATURE CHANGE [None]
  - FLATULENCE [None]
  - GASTROINTESTINAL DISORDER [None]
  - VISION BLURRED [None]
  - WEIGHT DECREASED [None]
